FAERS Safety Report 8111873-3 (Version None)
Quarter: 2012Q1

REPORT INFORMATION
  Report Type: 
  Country: None (occurrence: None)
  Receive Date: 20120203
  Receipt Date: 20120131
  Transmission Date: 20120608
  Serious: Yes (Other)
  Sender: FDA-Public Use
  Company Number: TR-BAYER-2011-123110

PATIENT
  Age: 28 Year
  Sex: Female

DRUGS (2)
  1. GADAVIST [Suspect]
     Indication: NUCLEAR MAGNETIC RESONANCE IMAGING
     Dosage: 7 ML, UNK
     Dates: start: 20111201, end: 20111201
  2. GADAVIST [Suspect]
     Indication: UPPER EXTREMITY MASS

REACTIONS (1)
  - ABORTION SPONTANEOUS [None]
